FAERS Safety Report 5910383-9 (Version None)
Quarter: 2008Q4

REPORT INFORMATION
  Report Type: 
  Country: None (occurrence: None)
  Receive Date: 20081007
  Receipt Date: 20080111
  Transmission Date: 20090506
  Serious: No
  Sender: FDA-Public Use
  Company Number: US-ASTRAZENECA-2008UW00835

PATIENT
  Age: 69 Year
  Sex: Female

DRUGS (6)
  1. ARIMIDEX [Suspect]
     Indication: BREAST CANCER
     Route: 048
     Dates: start: 20070101
  2. TAMOXIFEN CITRATE [Concomitant]
     Indication: BREAST CANCER
     Dates: start: 20040101, end: 20050101
  3. AROMASIN [Concomitant]
     Indication: BREAST CANCER
     Dates: start: 20060101, end: 20070101
  4. COZAAR [Concomitant]
  5. ATENOLOL [Concomitant]
  6. NEXIUM [Concomitant]

REACTIONS (2)
  - PAIN [None]
  - WEIGHT LOSS POOR [None]
